FAERS Safety Report 12822378 (Version 1)
Quarter: 2016Q4

REPORT INFORMATION
  Report Type: Report from Study
  Country: US (occurrence: US)
  Receive Date: 20161006
  Receipt Date: 20161006
  Transmission Date: 20170207
  Serious: No
  Sender: FDA-Public Use
  Company Number: US-THERATECHNOLOGIES, INC.-TH-2016-00123

PATIENT
  Age: 67 Year
  Sex: Male

DRUGS (9)
  1. TESTOST CYP [Concomitant]
     Active Substance: TESTOSTERONE CYPIONATE
     Dosage: 200 MG/ML
  2. VIGAMOX [Concomitant]
     Active Substance: MOXIFLOXACIN HYDROCHLORIDE
  3. EGRIFTA [Suspect]
     Active Substance: TESAMORELIN
     Route: 065
  4. COMPLERA [Concomitant]
     Active Substance: EMTRICITABINE\RILPIVIRINE HYDROCHLORIDE\TENOFOVIR DISOPROXIL FUMARATE
     Dosage: UNKNOWN
     Route: 065
  5. DUREZOL [Concomitant]
     Active Substance: DIFLUPREDNATE
  6. NAPROXEN. [Concomitant]
     Active Substance: NAPROXEN
  7. ILEVRO [Concomitant]
     Active Substance: NEPAFENAC
     Route: 047
  8. QUINAPRIL. [Concomitant]
     Active Substance: QUINAPRIL
  9. ODEFSEY [Concomitant]
     Active Substance: EMTRICITABINE\RILPIVIRINE HYDROCHLORIDE\TENOFOVIR ALAFENAMIDE FUMARATE
     Dosage: UNKNOWN

REACTIONS (2)
  - Joint stiffness [Not Recovered/Not Resolved]
  - Peripheral swelling [Not Recovered/Not Resolved]

NARRATIVE: CASE EVENT DATE: 20160916
